FAERS Safety Report 11322738 (Version 1)
Quarter: 2015Q3

REPORT INFORMATION
  Report Type: Spontaneous
  Country: US (occurrence: None)
  Receive Date: 20150729
  Receipt Date: 20150729
  Transmission Date: 20151125
  Serious: Yes (Death, Hospitalization, Disabling)
  Sender: FDA-Public Use
  Company Number: None

PATIENT
  Age: 58 Year
  Sex: Male
  Weight: 74.84 kg

DRUGS (22)
  1. PERCOCET [Concomitant]
     Active Substance: ACETAMINOPHEN\OXYCODONE HYDROCHLORIDE
  2. PLAQUENIL [Concomitant]
     Active Substance: HYDROXYCHLOROQUINE SULFATE
  3. FUROSEMIDE. [Concomitant]
     Active Substance: FUROSEMIDE
  4. VITAMIN C [Concomitant]
     Active Substance: ASCORBIC ACID
  5. FISH OIL [Concomitant]
     Active Substance: FISH OIL
  6. PLEGRIDY [Concomitant]
     Active Substance: PEGINTERFERON BETA-1A
  7. ATORVASTATIN [Concomitant]
     Active Substance: ATORVASTATIN
  8. CARVEDILOL. [Concomitant]
     Active Substance: CARVEDILOL
  9. PHENOBARBITOL [Concomitant]
  10. ALFUZOSIN [Concomitant]
     Active Substance: ALFUZOSIN
  11. CLOPIDOGREL [Concomitant]
     Active Substance: CLOPIDOGREL BISULFATE
  12. ASPIRIN. [Concomitant]
     Active Substance: ASPIRIN
  13. PLEGRIDY [Suspect]
     Active Substance: PEGINTERFERON BETA-1A
     Indication: RELAPSING-REMITTING MULTIPLE SCLEROSIS
     Dosage: ONE SYRINGE; GIVEN INTO/UNDER THE SKIN
     Dates: start: 20150421, end: 20150726
  14. IRBESARTAN. [Concomitant]
     Active Substance: IRBESARTAN
  15. MIRALAX [Concomitant]
     Active Substance: POLYETHYLENE GLYCOL 3350
  16. LEXAPRO [Concomitant]
     Active Substance: ESCITALOPRAM OXALATE
  17. FIBER TABLETS [Concomitant]
  18. AUGMENTIN [Concomitant]
     Active Substance: AMOXICILLIN\CLAVULANATE POTASSIUM
  19. VITAMIN D [Concomitant]
     Active Substance: CHOLECALCIFEROL
  20. OXYBUTYNIN [Concomitant]
     Active Substance: OXYBUTYNIN
  21. TYLENOL [Concomitant]
     Active Substance: ACETAMINOPHEN
  22. CALCIUM [Concomitant]
     Active Substance: CALCIUM

REACTIONS (5)
  - Disease complication [None]
  - Pulmonary oedema [None]
  - Cardiovascular disorder [None]
  - Respiratory failure [None]
  - Pyrexia [None]

NARRATIVE: CASE EVENT DATE: 20150726
